FAERS Safety Report 8357711-5 (Version None)
Quarter: 2012Q2

REPORT INFORMATION
  Report Type: 
  Country: None (occurrence: None)
  Receive Date: 20120514
  Receipt Date: 20120504
  Transmission Date: 20120825
  Serious: Yes (Disabling)
  Sender: FDA-Public Use
  Company Number: US-MERCK-1205USA00973

PATIENT
  Sex: Female

DRUGS (3)
  1. FOSAMAX [Suspect]
     Route: 065
     Dates: start: 19980101, end: 20101001
  2. FOSAMAX PLUS D [Suspect]
     Route: 065
     Dates: start: 19980101, end: 20101001
  3. ALENDRONATE SODIUM [Suspect]
     Route: 065
     Dates: start: 19980101, end: 20101001

REACTIONS (2)
  - FEMUR FRACTURE [None]
  - STRESS FRACTURE [None]
